FAERS Safety Report 5270299-0 (Version None)
Quarter: 2007Q1

REPORT INFORMATION
  Report Type: 
  Country: None (occurrence: None)
  Receive Date: 20070314
  Receipt Date: 20070226
  Transmission Date: 20070707
  Serious: Yes (Disabling)
  Sender: FDA-Public Use
  Company Number: 2007JP000536

PATIENT
  Age: 33 Year
  Sex: Female
  Weight: 51.7 kg

DRUGS (17)
  1. PROGRAF [Suspect]
     Indication: CORNEAL TRANSPLANT
     Dosage: 3 MG, BID, ORAL, 1.5 MG, BID, ORAL, 2 MG, BID,ORAL
     Route: 048
     Dates: end: 20070212
  2. PROGRAF [Suspect]
     Indication: CORNEAL TRANSPLANT
     Dosage: 3 MG, BID, ORAL, 1.5 MG, BID, ORAL, 2 MG, BID,ORAL
     Route: 048
     Dates: start: 20070214, end: 20070220
  3. PROGRAF [Suspect]
     Indication: CORNEAL TRANSPLANT
     Dosage: 3 MG, BID, ORAL, 1.5 MG, BID, ORAL, 2 MG, BID,ORAL
     Route: 048
     Dates: start: 20070221
  4. CELLCEPT [Concomitant]
  5. RINDERON TABLET [Concomitant]
  6. THYRADIN S (LEVOTHYROXINE SODIUM) TABLET [Concomitant]
  7. LEXOTAN (BROMAZEPAN) TABLET [Concomitant]
  8. ALPRAZOLAM [Concomitant]
  9. DEPROMEL (FLUVOXAMINE) TABLET [Concomitant]
  10. ZOLPIDEM TARTRATE [Concomitant]
  11. RESLIN (TRAZODONE HYDROCHLORIDE) TABLET [Concomitant]
  12. DORAL (QUAZEPAM) TABLET [Concomitant]
  13. CONTOMIN (CHLORPROMAZINE HYDROCHLORIDE) POWDER [Concomitant]
  14. XALATAN (LATANOPROS) EYE DROP [Concomitant]
  15. CRAVIT (LEVOFLOXACIN) EYE DROP [Concomitant]
  16. RINDERON EYE DROP [Concomitant]
  17. TARIVID (OFLOXACIN HYDROCHLORIDE) EYE OINTMENT [Concomitant]

REACTIONS (3)
  - CONVERSION DISORDER [None]
  - CONVULSION [None]
  - DEPRESSED LEVEL OF CONSCIOUSNESS [None]
